FAERS Safety Report 25751858 (Version 1)
Quarter: 2025Q3

REPORT INFORMATION
  Report Type: Report from Study
  Country: US (occurrence: US)
  Receive Date: 20250902
  Receipt Date: 20250902
  Transmission Date: 20251021
  Serious: No
  Sender: MALLINCKRODT
  Company Number: US-MALLINCKRODT-MNK202505319

PATIENT
  Age: 49 Year
  Sex: Male

DRUGS (1)
  1. CORTICOTROPIN [Suspect]
     Active Substance: CORTICOTROPIN
     Indication: Scleritis
     Dosage: 80 UNITS
     Route: 058
     Dates: start: 20250422, end: 2025

REACTIONS (1)
  - Intentional dose omission [Unknown]
